FAERS Safety Report 8837721 (Version 1)
Quarter: 2012Q4

REPORT INFORMATION
  Report Type: 
  Country: GB (occurrence: GB)
  Receive Date: 20121012
  Receipt Date: 20121012
  Transmission Date: 20130627
  Serious: Yes (Other)
  Sender: FDA-Public Use
  Company Number: GB-ABBOTT-12P-167-0992637-00

PATIENT
  Age: 15 Year
  Sex: Male

DRUGS (2)
  1. DEPAKOTE [Suspect]
     Indication: MANIA
     Dates: start: 20120808
  2. OLANZAPINE [Concomitant]
     Indication: PRODUCT USED FOR UNKNOWN INDICATION

REACTIONS (4)
  - Gingival bleeding [Unknown]
  - Epistaxis [Unknown]
  - Blood fibrinogen decreased [Unknown]
  - Platelet count decreased [Unknown]
